FAERS Safety Report 12674877 (Version 1)
Quarter: 2016Q3

REPORT INFORMATION
  Report Type: Spontaneous
  Country: CN (occurrence: CN)
  Receive Date: 20160823
  Receipt Date: 20160823
  Transmission Date: 20161109
  Serious: Yes (Death, Other)
  Sender: FDA-Public Use
  Company Number: CN-CIPLA LTD.-2016CN17423

PATIENT

DRUGS (12)
  1. DOCETAXEL. [Suspect]
     Active Substance: DOCETAXEL
     Indication: ANGIOSARCOMA
     Dosage: 75 MG/M2, ON DAY 1, REPEATED EVERY THREE WEEKS.
     Route: 065
  2. CISPLATIN. [Suspect]
     Active Substance: CISPLATIN
     Indication: ANGIOSARCOMA
     Dosage: 75 MG/M2, ON DAY 1, REPEATED EVERY 3 WEEKS
  3. CISPLATIN. [Suspect]
     Active Substance: CISPLATIN
     Indication: METASTASES TO LIVER
     Dosage: 30 MG/M2, ON DAY 1-2
  4. THALIDOMIDE [Concomitant]
     Active Substance: THALIDOMIDE
     Dosage: 100 MG, THROUGHOUT THE TREATMENT PROCESS AND CHEMOTHERAPY INTERVALS
     Route: 048
  5. GEMCITABINE [Suspect]
     Active Substance: GEMCITABINE\GEMCITABINE HYDROCHLORIDE
     Indication: METASTASES TO LIVER
     Dosage: 1 G/M2 ON DAYS 1 AND 8
     Route: 065
  6. DOCETAXEL. [Suspect]
     Active Substance: DOCETAXEL
     Dosage: 60 MG/M2, ON DAY 1
     Route: 065
  7. CISPLATIN. [Suspect]
     Active Substance: CISPLATIN
     Dosage: 75 MG/M2, ON DAY 1 AND 15
     Route: 065
  8. CYCLOPHOSPHAMIDE. [Suspect]
     Active Substance: CYCLOPHOSPHAMIDE
     Indication: ANGIOSARCOMA METASTATIC
     Dosage: 750 MG/M2, UNK ON DAY 1
     Route: 065
  9. DACARBAZINE. [Suspect]
     Active Substance: DACARBAZINE
     Indication: ANGIOSARCOMA METASTATIC
     Dosage: 250 MG/M2, FROM DAY 1 TO 5, REPEATED EVERY THREE WEEKS
     Route: 065
  10. EPIRUBICIN [Suspect]
     Active Substance: EPIRUBICIN
     Indication: ANGIOSARCOMA METASTATIC
     Dosage: 60 MG/M2, UNK  ON DAY 1
     Route: 065
  11. VINCRISTINE [Suspect]
     Active Substance: VINCRISTINE
     Indication: ANGIOSARCOMA METASTATIC
     Dosage: 1.4 MG/M2, ON DAY 1
     Route: 065
  12. ENDOSTATIN [Suspect]
     Active Substance: ENDOSTATIN
     Indication: METASTASES TO LIVER
     Dosage: 15 MG, ON DAYS 1 TO 14, REPEATED EVERY THREE WEEKS
     Route: 065

REACTIONS (7)
  - Disease progression [Unknown]
  - Hepatic function abnormal [Unknown]
  - Leukopenia [Not Recovered/Not Resolved]
  - Nausea [Unknown]
  - Death [Fatal]
  - Bone marrow failure [Unknown]
  - Disease recurrence [Unknown]

NARRATIVE: CASE EVENT DATE: 201102
